FAERS Safety Report 9473605 (Version 1)
Quarter: 2013Q3

REPORT INFORMATION
  Report Type: Spontaneous
  Country: GB (occurrence: GB)
  Receive Date: 20130823
  Receipt Date: 20130823
  Transmission Date: 20140515
  Serious: Yes (Hospitalization)
  Sender: FDA-Public Use
  Company Number: GB-TEVA-427325ISR

PATIENT
  Age: 72 Year
  Sex: Male

DRUGS (11)
  1. RAMIPRIL [Suspect]
     Indication: PRODUCT USED FOR UNKNOWN INDICATION
     Route: 065
  2. SPIRONOLACTONE [Suspect]
     Indication: PRODUCT USED FOR UNKNOWN INDICATION
     Route: 065
  3. BISOPROLOL [Concomitant]
  4. GLICLAZIDE [Concomitant]
     Indication: TYPE 2 DIABETES MELLITUS
  5. FERROUS FUMARATE [Concomitant]
     Dates: start: 20101213
  6. OMEPRAZOLE [Concomitant]
     Dates: start: 20101224
  7. ANTITHROMBOTIC AGENTS [Concomitant]
  8. ANTIHYPERTENSIVES [Concomitant]
  9. ACE INHIBITOR NOS [Concomitant]
  10. STATINS [Concomitant]
  11. BETA BLOCKERS [Concomitant]

REACTIONS (1)
  - Renal failure acute [Not Recovered/Not Resolved]
